FAERS Safety Report 11812236 (Version 1)
Quarter: 2015Q4

REPORT INFORMATION
  Report Type: Spontaneous
  Country: US (occurrence: US)
  Receive Date: 20151208
  Receipt Date: 20151208
  Transmission Date: 20160305
  Serious: No
  Sender: FDA-Public Use
  Company Number: US-LPDUSPRD-20150190

PATIENT
  Sex: Female

DRUGS (1)
  1. VENOFER [Suspect]
     Active Substance: IRON SUCROSE
     Dosage: 400 MG IN 1 AND A 1/2 HOURS
     Route: 042

REACTIONS (2)
  - Oedema peripheral [Recovered/Resolved]
  - Back pain [Recovered/Resolved]
